FAERS Safety Report 21656827 (Version 1)
Quarter: 2022Q4

REPORT INFORMATION
  Report Type: Spontaneous
  Country: US (occurrence: US)
  Receive Date: 20221129
  Receipt Date: 20221129
  Transmission Date: 20230113
  Serious: No
  Sender: FDA-Public Use
  Company Number: US-TEVA-2022-US-2823433

PATIENT
  Age: 64 Year
  Sex: Male

DRUGS (1)
  1. PROAIR RESPICLICK [Interacting]
     Active Substance: ALBUTEROL SULFATE
     Indication: Asthma
     Dosage: 90 MCG/DOSE
     Route: 065

REACTIONS (1)
  - Drug ineffective [Unknown]
